FAERS Safety Report 5489932-3 (Version None)
Quarter: 2007Q4

REPORT INFORMATION
  Report Type: 
  Country: None (occurrence: None)
  Receive Date: 20071018
  Receipt Date: 20071010
  Transmission Date: 20080405
  Serious: Yes (Other)
  Sender: FDA-Public Use
  Company Number: US-SHR-US-2007-031060

PATIENT
  Age: 41 Year
  Sex: Female
  Weight: 56.2 kg

DRUGS (1)
  1. MIRENA [Suspect]
     Indication: CONTRACEPTION
     Dosage: 20 A?G/DAY, CONT
     Route: 015
     Dates: start: 20051207, end: 20070326

REACTIONS (17)
  - ABDOMINAL DISTENSION [None]
  - ABDOMINAL PAIN LOWER [None]
  - ALOPECIA [None]
  - BACK PAIN [None]
  - DYSPAREUNIA [None]
  - DYSURIA [None]
  - EMOTIONAL DISORDER [None]
  - FATIGUE [None]
  - HYPERHIDROSIS [None]
  - LIBIDO DECREASED [None]
  - MEMORY IMPAIRMENT [None]
  - MENORRHAGIA [None]
  - MUSCLE SPASMS [None]
  - NAUSEA [None]
  - OVARIAN CYST [None]
  - SWELLING [None]
  - WEIGHT INCREASED [None]
